FAERS Safety Report 5691507-8 (Version None)
Quarter: 2008Q2

REPORT INFORMATION
  Report Type: 
  Country: None (occurrence: None)
  Receive Date: 20080401
  Receipt Date: 20080321
  Transmission Date: 20081010
  Serious: No
  Sender: FDA-Public Use
  Company Number: APP200800175

PATIENT
  Age: 56 Year
  Sex: Male

DRUGS (3)
  1. HEPARIN SODIUM INJECTION [Suspect]
     Indication: PERITONEAL DIALYSIS
     Dosage: EVERY PERITONEAL DIALYSIS SESSION, INTRAPERITONEAL
     Route: 033
     Dates: start: 20060101
  2. FELODIPINE [Concomitant]
  3. LOSARTAN POTASSIUM [Concomitant]

REACTIONS (1)
  - HYPOTENSION [None]
